FAERS Safety Report 21946976 (Version 1)
Quarter: 2023Q1

REPORT INFORMATION
  Report Type: Spontaneous
  Country: CN (occurrence: CN)
  Receive Date: 20230202
  Receipt Date: 20230202
  Transmission Date: 20230418
  Serious: Yes (Other)
  Sender: FDA-Public Use
  Company Number: CN-PFIZER INC-PV202300019168

PATIENT
  Age: 63 Year
  Sex: Male
  Weight: 56 kg

DRUGS (1)
  1. NIRMATRELVIR\RITONAVIR [Suspect]
     Active Substance: NIRMATRELVIR\RITONAVIR
     Indication: COVID-19 treatment
     Dosage: [PF-07321332 150 MG]/[RITONAVIR 100 MG]; 2X/DAY
     Route: 048
     Dates: start: 20221226, end: 20221227

REACTIONS (3)
  - Diarrhoea [Recovering/Resolving]
  - Creatinine renal clearance decreased [Unknown]
  - Urine output decreased [Unknown]

NARRATIVE: CASE EVENT DATE: 20221227
